FAERS Safety Report 9700394 (Version 2)
Quarter: 2014Q2

REPORT INFORMATION
  Report Type: Spontaneous
  Country: US (occurrence: US)
  Receive Date: 20131121
  Receipt Date: 20140530
  Transmission Date: 20141212
  Serious: No
  Sender: FDA-Public Use
  Company Number: US-009507513-1311USA008044

PATIENT
  Sex: Female
  Weight: 53.97 kg

DRUGS (5)
  1. MIRALAX [Suspect]
     Indication: COLONOSCOPY
     Dosage: 8.5 G, ONCE
     Route: 048
     Dates: start: 20131107, end: 20131107
  2. MIRALAX [Suspect]
     Indication: CONSTIPATION
  3. PROBIOTICS (UNSPECIFIED) [Concomitant]
     Indication: PRODUCT USED FOR UNKNOWN INDICATION
     Dosage: UNK, UNKNOWN
  4. CALCIUM (UNSPECIFIED) [Concomitant]
     Indication: PRODUCT USED FOR UNKNOWN INDICATION
     Dosage: UNK, UNKNOWN
  5. VITAMIN D (UNSPECIFIED) [Concomitant]
     Indication: PRODUCT USED FOR UNKNOWN INDICATION
     Dosage: UNK, UNKNOWN

REACTIONS (7)
  - Oral pain [Not Recovered/Not Resolved]
  - Pain [Unknown]
  - Paraesthesia oral [Unknown]
  - Oral discomfort [Not Recovered/Not Resolved]
  - Feeling abnormal [Unknown]
  - Underdose [Unknown]
  - Off label use [Unknown]
